FAERS Safety Report 9711302 (Version 2)
Quarter: 2014Q1

REPORT INFORMATION
  Report Type: Spontaneous
  Country: SE (occurrence: SE)
  Receive Date: 20131126
  Receipt Date: 20140116
  Transmission Date: 20141002
  Serious: Yes (Hospitalization)
  Sender: FDA-Public Use
  Company Number: SE-ELI_LILLY_AND_COMPANY-SE201311006134

PATIENT
  Age: 76 Year
  Sex: Female

DRUGS (6)
  1. CYMBALTA [Suspect]
     Indication: MAJOR DEPRESSION
     Dosage: 60 MG, UNK
     Route: 065
     Dates: start: 201306, end: 201310
  2. CYMBALTA [Suspect]
     Indication: GENERALISED ANXIETY DISORDER
  3. CYMBALTA [Suspect]
     Indication: DIABETIC NEUROPATHY
  4. FELODIPIN [Concomitant]
     Indication: HYPERTENSION
     Dosage: 5 MG, UNKNOWN
  5. ZOPICLON [Concomitant]
     Indication: SLEEP DISORDER
     Dosage: 5 MG, UNKNOWN
  6. OXASCAND [Concomitant]
     Indication: ANXIETY
     Dosage: 5 MG, UNKNOWN

REACTIONS (2)
  - Pain in extremity [Recovered/Resolved with Sequelae]
  - Hyperhidrosis [Recovered/Resolved with Sequelae]
